FAERS Safety Report 5153610-0 (Version None)
Quarter: 2006Q4

REPORT INFORMATION
  Report Type: 
  Country: None (occurrence: None)
  Receive Date: 20061113
  Receipt Date: 20061030
  Transmission Date: 20070319
  Serious: Yes (Hospitalization)
  Sender: FDA-Public Use
  Company Number: 231932

PATIENT
  Age: 71 Year
  Sex: Male
  Weight: 80 kg

DRUGS (5)
  1. MABTHERA (RITUXIMAB)CONC FOR SOLUTION FOR INFUSION [Suspect]
     Indication: CHRONIC LYMPHOCYTIC LEUKAEMIA
     Dosage: 1000MG, INTRAVENOUS
     Route: 042
     Dates: start: 20051108, end: 20060301
  2. FLUDARABINE PHOSPHATE [Suspect]
     Indication: CHRONIC LYMPHOCYTIC LEUKAEMIA
     Dosage: 37.5 MG, INTRAVENOUS
     Route: 042
     Dates: start: 20051109, end: 20060317
  3. CYCLOPHOSPHAMIDE [Suspect]
     Indication: CHRONIC LYMPHOCYTIC LEUKAEMIA
     Dosage: 375 MG, INTRAVENOUS
     Route: 042
     Dates: start: 20051109, end: 20060317
  4. ALLOPURINOL [Concomitant]
  5. URALYT-U (POTASSIUM SODIUM HYDROGEN CITRATE) [Concomitant]

REACTIONS (2)
  - DIARRHOEA [None]
  - PNEUMONIA FUNGAL [None]
